FAERS Safety Report 19475880 (Version 1)
Quarter: 2021Q2

REPORT INFORMATION
  Report Type: Spontaneous
  Country: AU (occurrence: AU)
  Receive Date: 20210630
  Receipt Date: 20210630
  Transmission Date: 20210717
  Serious: Yes (Other)
  Sender: FDA-Public Use
  Company Number: AU-PFIZER INC-2021763590

PATIENT
  Age: 71 Year
  Sex: Male

DRUGS (3)
  1. ASPIRINE [Suspect]
     Active Substance: ASPIRIN
     Indication: HYPERTENSION
     Dosage: 300 MG,  IN THE MORNING
     Dates: start: 1985
  2. PRAZOSIN HCL [Suspect]
     Active Substance: PRAZOSIN HYDROCHLORIDE
     Indication: HYPERTENSION
     Dosage: 1 MG, 2X/DAY
     Dates: start: 1985
  3. MEXILETINE [Suspect]
     Active Substance: MEXILETINE
     Indication: HYPERTENSION
     Dosage: 200 MG, 2X/DAY
     Dates: start: 1985

REACTIONS (2)
  - Cerebral ischaemia [Unknown]
  - Retinopathy hypertensive [Unknown]

NARRATIVE: CASE EVENT DATE: 1985
